FAERS Safety Report 24351097 (Version 1)
Quarter: 2024Q3

REPORT INFORMATION
  Report Type: Report from Study
  Country: IT (occurrence: IT)
  Receive Date: 20240923
  Receipt Date: 20240923
  Transmission Date: 20241016
  Serious: No
  Sender: ROCHE
  Company Number: IT-ROCHE-2324392

PATIENT
  Age: 36 Year
  Sex: Female
  Weight: 75.0 kg

DRUGS (11)
  1. HERCEPTIN [Suspect]
     Active Substance: TRASTUZUMAB
     Indication: HER2 positive breast cancer
     Route: 041
     Dates: start: 20181214, end: 20190125
  2. TAXOTERE [Suspect]
     Active Substance: DOCETAXEL
     Indication: HER2 positive breast cancer
     Route: 042
     Dates: start: 20181123, end: 20190104
  3. TAXOTERE [Suspect]
     Active Substance: DOCETAXEL
     Route: 042
     Dates: start: 20190125, end: 20190426
  4. PERJETA [Suspect]
     Active Substance: PERTUZUMAB
     Indication: HER2 positive breast cancer
     Route: 042
     Dates: start: 20181214
  5. TRIPTORELIN [Suspect]
     Active Substance: TRIPTORELIN
     Indication: HER2 positive breast cancer
     Route: 030
     Dates: start: 20151015, end: 202006
  6. PREDNISONE [Concomitant]
     Active Substance: PREDNISONE
     Dosage: ONGOING = CHECKED
     Dates: start: 20181123
  7. ONDANSETRON [Concomitant]
     Active Substance: ONDANSETRON
     Dosage: ONGOING = CHECKED
     Dates: start: 20181123
  8. BISOPROLOL [Concomitant]
     Active Substance: BISOPROLOL\BISOPROLOL FUMARATE
     Dosage: ONGOING = CHECKED
     Dates: start: 20190104
  9. RANITIDINE [Concomitant]
     Active Substance: RANITIDINE
     Dosage: ONGOING = CHECKED
     Dates: start: 20181123
  10. LOPERAMIDE [Concomitant]
     Active Substance: LOPERAMIDE
     Dosage: ONGOING = CHECKED
     Dates: start: 20181214
  11. SODIUM BICARBONATE [Concomitant]
     Active Substance: SODIUM BICARBONATE
     Dosage: ONGOING = CHECKED
     Dates: start: 20181214

REACTIONS (1)
  - Diarrhoea [Recovered/Resolved]

NARRATIVE: CASE EVENT DATE: 20181221
